FAERS Safety Report 9742632 (Version 1)
Quarter: 2013Q4

REPORT INFORMATION
  Report Type: Spontaneous
  Country: US (occurrence: US)
  Receive Date: 20131210
  Receipt Date: 20131210
  Transmission Date: 20140711
  Serious: No
  Sender: FDA-Public Use
  Company Number: US-GILEAD-2009-0024791

PATIENT
  Age: 42 Year
  Sex: Male
  Weight: 81.65 kg

DRUGS (6)
  1. LETAIRIS [Suspect]
     Indication: PULMONARY ARTERIAL HYPERTENSION
     Route: 048
     Dates: start: 20090116
  2. METOPROL [Concomitant]
  3. SOTALOL [Concomitant]
  4. SPIRONOLACTONE [Concomitant]
  5. ASA LO-DOSE [Concomitant]
  6. FOLIC ACID [Concomitant]

REACTIONS (2)
  - Hyperhidrosis [Not Recovered/Not Resolved]
  - Gastrooesophageal reflux disease [Not Recovered/Not Resolved]
